FAERS Safety Report 4898631-8 (Version None)
Quarter: 2006Q1

REPORT INFORMATION
  Report Type: 
  Country: None (occurrence: None)
  Receive Date: 20060130
  Receipt Date: 20060118
  Transmission Date: 20060701
  Serious: Yes (Hospitalization)
  Sender: FDA-Public Use
  Company Number: GXKR2006NL00520

PATIENT
  Age: 47 Year
  Sex: Female

DRUGS (3)
  1. RIFAMPICIN [Suspect]
     Indication: TUBERCULOSIS
     Dates: start: 20050910, end: 20051217
  2. FUROSEMIDE [Suspect]
     Dosage: 40 MG, QD,
     Dates: start: 20000101, end: 20051214
  3. ISONIAZID [Suspect]
     Indication: TUBERCULOSIS
     Dates: start: 20050910, end: 20051217

REACTIONS (1)
  - PANCREATITIS [None]
